FAERS Safety Report 8773409 (Version 1)
Quarter: 2012Q4

REPORT INFORMATION
  Report Type: 
  Country: GB (occurrence: GB)
  Receive Date: 20120907
  Receipt Date: 20120907
  Transmission Date: 20130627
  Serious: Yes (Hospitalization, Other)
  Sender: FDA-Public Use
  Company Number: GB-JNJFOC-20120813428

PATIENT

DRUGS (1)
  1. FENTANYL [Suspect]
     Indication: FOETAL EXPOSURE DURING PREGNANCY
     Route: 064

REACTIONS (1)
  - Foetal distress syndrome [Unknown]
